FAERS Safety Report 24956217 (Version 1)
Quarter: 2025Q1

REPORT INFORMATION
  Report Type: Report from Study
  Country: AE (occurrence: AE)
  Receive Date: 20250211
  Receipt Date: 20250211
  Transmission Date: 20250409
  Serious: Yes (Other)
  Sender: ALEXION PHARMACEUTICALS
  Company Number: AE-AstraZeneca-CH-00802580A

PATIENT

DRUGS (1)
  1. ACALABRUTINIB [Suspect]
     Active Substance: ACALABRUTINIB
     Indication: Chronic lymphocytic leukaemia
     Dosage: 100 MILLIGRAM, Q12H

REACTIONS (7)
  - Rheumatoid arthritis [Unknown]
  - Liver disorder [Unknown]
  - Chronic kidney disease [Unknown]
  - Herpes virus infection [Unknown]
  - Immunodeficiency [Unknown]
  - Hypocalcaemia [Unknown]
  - Hypothyroidism [Unknown]
